FAERS Safety Report 5247240-X (Version None)
Quarter: 2007Q1

REPORT INFORMATION
  Report Type: 
  Country: None (occurrence: None)
  Receive Date: 20070227
  Receipt Date: 20070220
  Transmission Date: 20070707
  Serious: Yes (Death, Other)
  Sender: FDA-Public Use
  Company Number: PHNU2007RO00980

PATIENT
  Sex: Male
  Weight: 75 kg

DRUGS (3)
  1. COMTAN [Suspect]
     Indication: PARKINSON'S DISEASE
     Dosage: 200 MG, TID
     Route: 048
     Dates: start: 20050201, end: 20060901
  2. MIRAPEXIN [Concomitant]
     Dosage: 3 DF/DAY
     Route: 048
  3. CARBIDOPA AND LEVODOPA [Concomitant]
     Dosage: 3 DF/DAY
     Route: 048

REACTIONS (4)
  - ASTHENIA [None]
  - DYSPHAGIA [None]
  - FALL [None]
  - PARKINSON'S DISEASE [None]
